FAERS Safety Report 9146802 (Version 1)
Quarter: 2013Q1

REPORT INFORMATION
  Report Type: Spontaneous
  Country: US (occurrence: US)
  Receive Date: 20130307
  Receipt Date: 20130307
  Transmission Date: 20140127
  Serious: Yes (Other)
  Sender: FDA-Public Use
  Company Number: US-BAXTER-2013BAX008222

PATIENT
  Age: 14 Year
  Sex: Female

DRUGS (3)
  1. GAMMAGARD LIQUID [Suspect]
     Indication: FEBRILE CONVULSION
     Route: 042
  2. METHYLPREDNISOLONE [Suspect]
     Indication: FEBRILE CONVULSION
     Route: 042
  3. ANAKINRA [Suspect]
     Indication: FEBRILE CONVULSION

REACTIONS (1)
  - Drug ineffective [Not Recovered/Not Resolved]
